FAERS Safety Report 5488413-0 (Version None)
Quarter: 2007Q3

REPORT INFORMATION
  Report Type: 
  Country: None (occurrence: None)
  Receive Date: 20070927
  Receipt Date: 20070711
  Transmission Date: 20080115
  Serious: No
  Sender: FDA-Public Use
  Company Number: US-CVT-070130

PATIENT
  Sex: Male

DRUGS (16)
  1. RANEXA [Suspect]
     Indication: ANGINA PECTORIS
     Dosage: 500 MG, BID, ORAL
     Route: 048
     Dates: start: 20070601
  2. METFORMIN/00082701/ (METFORMIN) [Concomitant]
  3. CLOPIDOGREL/0122070/ (CLOPIDOGREL) [Concomitant]
  4. DOCUSATE (DOCUSATE) [Concomitant]
  5. FELODIPINE [Concomitant]
  6. FINASTERIDE [Concomitant]
  7. FUROSEMIDE(00032601/ (FUROSEMIDE) [Concomitant]
  8. GLYBURIDE [Concomitant]
  9. ISOSORBIDE MONONITRATE [Concomitant]
  10. LISINOPRIL/00894001/ (LISINOPRIL) [Concomitant]
  11. METOPROLOL SUCCINATE [Concomitant]
  12. NITROGLYCERIN [Concomitant]
  13. OMEPRAZOLE [Concomitant]
  14. SENOKOT /00142201/ (SENNA ALEXANDRINA) [Concomitant]
  15. SIMVASTATIN [Concomitant]
  16. TAMSULOSIN HCL [Concomitant]

REACTIONS (1)
  - BREATH ODOUR [None]
